FAERS Safety Report 6291631-5 (Version None)
Quarter: 2009Q3

REPORT INFORMATION
  Report Type: 
  Country: None (occurrence: None)
  Receive Date: 20090730
  Receipt Date: 20070813
  Transmission Date: 20100115
  Serious: Yes (Death, Other)
  Sender: FDA-Public Use
  Company Number: US-ASTRAZENECA-2006UW21616

PATIENT
  Age: 4354 Day
  Sex: Female
  Weight: 78.2 kg

DRUGS (16)
  1. SEROQUEL [Suspect]
     Indication: ANXIETY
     Dosage: 25 - 50 MG
     Route: 048
     Dates: start: 20010101, end: 20030501
  2. SEROQUEL [Suspect]
     Indication: ATTENTION DEFICIT/HYPERACTIVITY DISORDER
     Dosage: 25 - 50 MG
     Route: 048
     Dates: start: 20010101, end: 20030501
  3. SEROQUEL [Suspect]
     Route: 048
     Dates: start: 20021118
  4. SEROQUEL [Suspect]
     Route: 048
     Dates: start: 20021118
  5. SEROQUEL [Suspect]
     Route: 048
     Dates: start: 20030101, end: 20030501
  6. SEROQUEL [Suspect]
     Route: 048
     Dates: start: 20030101, end: 20030501
  7. CONCERTA [Concomitant]
     Dates: start: 20011213
  8. BLEPHAMIDE [Concomitant]
     Dates: start: 20030423
  9. AMOXIL [Concomitant]
     Dates: start: 20030131
  10. RESTORIL [Concomitant]
  11. CLONIDINE [Concomitant]
     Dates: end: 20011213
  12. IMIPRAMINE [Concomitant]
     Dates: end: 20011213
  13. WELLBUTRIN [Concomitant]
     Dates: end: 20011213
  14. BENADRYL [Concomitant]
     Dates: start: 20011213
  15. MOTRIN [Concomitant]
     Dates: start: 20020804
  16. FLEXERIL [Concomitant]
     Dates: start: 20020804

REACTIONS (9)
  - CARDIO-RESPIRATORY ARREST [None]
  - CONGENITAL ECTODERMAL DYSPLASIA [None]
  - DEATH [None]
  - DIABETES MELLITUS [None]
  - DIABETIC COMPLICATION [None]
  - DIABETIC KETOACIDOSIS [None]
  - HEPATIC STEATOSIS [None]
  - PULMONARY CONGESTION [None]
  - PULMONARY OEDEMA [None]
